FAERS Safety Report 9231178 (Version 2)
Quarter: 2013Q2

REPORT INFORMATION
  Report Type: Spontaneous
  Country: US (occurrence: None)
  Receive Date: 20121031
  Receipt Date: 20130107
  Transmission Date: 20140414
  Serious: Yes (Other)
  Sender: FDA-Public Use
  Company Number: PHEH2012US015994

PATIENT
  Sex: Female

DRUGS (7)
  1. GILENYA [Suspect]
     Route: 048
  2. DETROL (TOLTERODINE L-TARTRATE) [Concomitant]
  3. ORTHO CYCLEN (ETHINYLESTRADIOL NOREGESTIMATE) [Concomitant]
  4. CALCIUM D (COLECALCIFEROL) [Concomitant]
  5. MULTIVITAMINS (ASCORBIC ACID, ERGOCALCIFEROL, FOLIC AICD, NICOTINAMIDE), PANTEHNOL, RETINOL, RIBOFLAVIN, THIAMINE HYDROCHLORIDE) [Concomitant]
  6. VITAMIN D (ERGOCALCIFEROL) [Concomitant]
  7. TAB WOMENS [Concomitant]

REACTIONS (1)
  - Musculoskeletal stiffness [None]
